FAERS Safety Report 17168713 (Version 1)
Quarter: 2019Q4

REPORT INFORMATION
  Report Type: Spontaneous
  Country: US (occurrence: US)
  Receive Date: 20191217
  Receipt Date: 20191217
  Transmission Date: 20200122
  Serious: Yes (Other)
  Sender: FDA-Public Use
  Company Number: None

PATIENT
  Age: 16 Year
  Sex: Male
  Weight: 56.25 kg

DRUGS (4)
  1. CLONODINE [Concomitant]
     Active Substance: CLONIDINE
  2. ZYRTEC [Concomitant]
     Active Substance: CETIRIZINE HYDROCHLORIDE
  3. CONCERTA [Suspect]
     Active Substance: METHYLPHENIDATE HYDROCHLORIDE
     Indication: ATTENTION DEFICIT/HYPERACTIVITY DISORDER
     Dosage: ?          QUANTITY:2 TABLET(S);?
     Route: 048
     Dates: start: 20191215
  4. TRAZEDONE [Concomitant]

REACTIONS (3)
  - Psychomotor hyperactivity [None]
  - Agitation [None]
  - Drug ineffective [None]

NARRATIVE: CASE EVENT DATE: 20191215
